FAERS Safety Report 4592642-8 (Version None)
Quarter: 2005Q1

REPORT INFORMATION
  Report Type: 
  Country: None (occurrence: None)
  Receive Date: 20050228
  Receipt Date: 20050216
  Transmission Date: 20050727
  Serious: Yes (Other)
  Sender: FDA-Public Use
  Company Number: US-JNJFOC-20041006889

PATIENT
  Sex: Female
  Weight: 73.03 kg

DRUGS (5)
  1. LEVAQUIN [Suspect]
  2. LEVAQUIN [Suspect]
     Indication: PNEUMONIA
  3. EYE DROPS [Concomitant]
     Indication: GLAUCOMA
  4. ATENOLOL [Concomitant]
     Indication: HYPERTENSION
  5. CARDURA [Concomitant]
     Indication: HYPERTENSION

REACTIONS (5)
  - AGEUSIA [None]
  - ANHEDONIA [None]
  - ORAL CANDIDIASIS [None]
  - ORAL DISCOMFORT [None]
  - WEIGHT DECREASED [None]
